FAERS Safety Report 22265687 (Version 1)
Quarter: 2023Q2

REPORT INFORMATION
  Report Type: Spontaneous
  Country: US (occurrence: US)
  Receive Date: 20230428
  Receipt Date: 20230428
  Transmission Date: 20230721
  Serious: No
  Sender: FDA-Public Use
  Company Number: US-MYOVANT SCIENCES GMBH-2023MYSCI0300698

PATIENT
  Age: 80 Year
  Sex: Male

DRUGS (11)
  1. ORGOVYX [Suspect]
     Active Substance: RELUGOLIX
     Indication: Prostate cancer
     Dosage: 360 MILLIGRAM, ONE TIME DOSE
     Route: 048
  2. ORGOVYX [Suspect]
     Active Substance: RELUGOLIX
     Dosage: 120 MILLIGRAM, QD
     Route: 048
     Dates: end: 20230322
  3. HYDROCHLOROTHIAZIDE\IRBESARTAN [Concomitant]
     Active Substance: HYDROCHLOROTHIAZIDE\IRBESARTAN
     Indication: Blood pressure abnormal
     Dosage: 150 MILLIGRAM, QD
     Route: 065
  4. TAMSULOSIN [Concomitant]
     Active Substance: TAMSULOSIN
     Indication: Prostatic disorder
     Dosage: 4 MILLIGRAM, QD
     Route: 065
  5. ATORVASTATIN CALCIUM [Concomitant]
     Active Substance: ATORVASTATIN CALCIUM
     Indication: Blood cholesterol increased
     Dosage: 10 MILLIGRAM, QD
     Route: 065
  6. ABIRATERONE [Concomitant]
     Active Substance: ABIRATERONE
     Indication: Prostatic disorder
     Dosage: 250 MILLIGRAM, Q6H
     Route: 065
  7. PREDNISONE [Concomitant]
     Active Substance: PREDNISONE
     Indication: Prostatic disorder
     Dosage: 5 MILLIGRAM, QD
     Route: 065
  8. ALLOPURINOL [Concomitant]
     Active Substance: ALLOPURINOL
     Indication: Gout
     Dosage: 300 MILLIGRAM, QD
     Route: 065
  9. ATENOLOL [Concomitant]
     Active Substance: ATENOLOL
     Indication: Atrial fibrillation
     Dosage: 50 MILLIGRAM, BID
     Route: 065
  10. ELIQUIS [Concomitant]
     Active Substance: APIXABAN
     Indication: Atrial fibrillation
     Dosage: 5 MILLIGRAM, BID
     Route: 065
  11. KLOR-CON M10 [Concomitant]
     Active Substance: POTASSIUM CHLORIDE
     Indication: Blood potassium abnormal
     Dosage: 20 MILLIEQUIVALENT, BID
     Route: 065

REACTIONS (1)
  - Therapy interrupted [Unknown]

NARRATIVE: CASE EVENT DATE: 20230323
